FAERS Safety Report 4473445-1 (Version None)
Quarter: 2004Q3

REPORT INFORMATION
  Report Type: 
  Country: None (occurrence: None)
  Receive Date: 20040920
  Receipt Date: 20040628
  Transmission Date: 20050211
  Serious: Yes (Hospitalization)
  Sender: FDA-Public Use
  Company Number: S04-USA-03714-01

PATIENT
  Age: 69 Year
  Sex: Female

DRUGS (2)
  1. CELEXA [Suspect]
  2. COZAAR [Suspect]

REACTIONS (1)
  - LIVER FUNCTION TEST ABNORMAL [None]
